FAERS Safety Report 10029382 (Version 3)
Quarter: 2014Q2

REPORT INFORMATION
  Report Type: Spontaneous
  Country: GB (occurrence: GB)
  Receive Date: 20140322
  Receipt Date: 20140627
  Transmission Date: 20141212
  Serious: Yes (Hospitalization)
  Sender: FDA-Public Use
  Company Number: PHFR2014GB002316

PATIENT
  Age: 45 Year
  Sex: Male

DRUGS (6)
  1. GILENYA [Suspect]
     Indication: MULTIPLE SCLEROSIS
     Dosage: 0.5 MG, QD
     Route: 048
     Dates: start: 20140123
  2. LANTUS [Concomitant]
     Indication: DIABETES MELLITUS
     Dosage: 22 U, UNK
     Route: 058
  3. RAMIPRIL [Concomitant]
     Indication: CARDIOVASCULAR EVENT PROPHYLAXIS
     Dosage: 10 MG, UNK
     Route: 048
  4. CITALOPRAM [Concomitant]
     Indication: DEPRESSION
     Dosage: 70 MG, DAILY
     Route: 048
  5. NOVORAPID [Concomitant]
     Indication: DIABETES MELLITUS
     Dosage: 380 MG, UNK
     Route: 058
  6. OMEGA 3 [Concomitant]
     Dosage: 1000 MG, DAILY
     Route: 048

REACTIONS (8)
  - Convulsion [Unknown]
  - Pyrexia [Recovered/Resolved]
  - Cerebral infarction [Unknown]
  - Multiple sclerosis relapse [Not Recovered/Not Resolved]
  - Malaise [Recovered/Resolved with Sequelae]
  - Central nervous system lesion [Recovered/Resolved]
  - C-reactive protein increased [Recovered/Resolved]
  - Lymphocyte count decreased [Recovered/Resolved]
